FAERS Safety Report 25258216 (Version 1)
Quarter: 2025Q2

REPORT INFORMATION
  Report Type: Spontaneous
  Country: BE (occurrence: BE)
  Receive Date: 20250501
  Receipt Date: 20250501
  Transmission Date: 20250717
  Serious: Yes (Other)
  Sender: ROCHE
  Company Number: BE-ROCHE-10000268396

PATIENT

DRUGS (3)
  1. HERCEPTIN [Suspect]
     Active Substance: TRASTUZUMAB
     Indication: Neoplasm
     Route: 065
     Dates: start: 20230215
  2. TAXOL [Concomitant]
     Active Substance: PACLITAXEL
     Dates: start: 20230215
  3. CARBOPLATIN [Concomitant]
     Active Substance: CARBOPLATIN
     Dates: start: 20230215

REACTIONS (1)
  - Neoplasm recurrence [Unknown]
